FAERS Safety Report 7104275-X (Version None)
Quarter: 2010Q4

REPORT INFORMATION
  Report Type: 
  Country: None (occurrence: None)
  Receive Date: 20101115
  Receipt Date: 20100616
  Transmission Date: 20110411
  Serious: No
  Sender: FDA-Public Use
  Company Number: US-ALLERGAN-1007886US

PATIENT
  Sex: Female

DRUGS (8)
  1. BOTOX COSMETIC [Suspect]
     Indication: SKIN WRINKLING
     Dosage: UNK
     Route: 030
     Dates: start: 20100615, end: 20100615
  2. SYNTHROID [Concomitant]
  3. HYDROCHLOROTHIAZIDE [Concomitant]
     Dosage: 25 MG, UNK
  4. CYTOMEL [Concomitant]
  5. VESICARE [Concomitant]
  6. KAPIDEX [Concomitant]
  7. FISH OIL [Concomitant]
  8. ZYRTEC [Concomitant]

REACTIONS (1)
  - RASH ERYTHEMATOUS [None]
